FAERS Safety Report 19533743 (Version 8)
Quarter: 2021Q4

REPORT INFORMATION
  Report Type: Spontaneous
  Country: HR (occurrence: HR)
  Receive Date: 20210713
  Receipt Date: 20211027
  Transmission Date: 20220303
  Serious: Yes (Hospitalization, Other)
  Sender: FDA-Public Use
  Company Number: NVSC2021HR155837

PATIENT
  Age: 46 Year
  Sex: Female

DRUGS (24)
  1. FUROSEMIDE [Interacting]
     Active Substance: FUROSEMIDE
     Indication: Nephropathy toxic
     Dosage: 40 MG, QD
     Route: 048
  2. FUROSEMIDE [Interacting]
     Active Substance: FUROSEMIDE
     Indication: Acute kidney injury
  3. PROPRANOLOL HYDROCHLORIDE [Interacting]
     Active Substance: PROPRANOLOL HYDROCHLORIDE
     Indication: Migraine
     Dosage: 20 MG, TID
     Route: 065
  4. ATORVASTATIN [Interacting]
     Active Substance: ATORVASTATIN
     Indication: Dyslipidaemia
     Dosage: 20 MG, QD
     Route: 048
  5. PANTOPRAZOLE [Interacting]
     Active Substance: PANTOPRAZOLE
     Indication: Product used for unknown indication
     Dosage: 40 MG, QD
     Route: 048
  6. CEFTRIAXONE [Interacting]
     Active Substance: CEFTRIAXONE
     Indication: Urinary tract infection
     Dosage: 1 G, QD
     Route: 042
  7. CEFTRIAXONE [Interacting]
     Active Substance: CEFTRIAXONE
     Indication: Pneumonia
  8. DICLOFENAC [Interacting]
     Active Substance: DICLOFENAC
     Indication: Migraine
     Dosage: 150-200 MG, QD
     Route: 065
  9. DICLOFENAC [Interacting]
     Active Substance: DICLOFENAC
     Dosage: 150 MG, QD
     Route: 048
  10. DICLOFENAC [Interacting]
     Active Substance: DICLOFENAC
     Dosage: UNK
     Route: 048
  11. DICLOFENAC [Interacting]
     Active Substance: DICLOFENAC
     Dosage: 200 MG, QD
     Route: 048
  12. DICLOFENAC [Interacting]
     Active Substance: DICLOFENAC
     Dosage: 200 MG, QD (150-200 MG, QD, INCREASED)
     Route: 065
  13. SULFAMETHOXAZOLE AND TRIMETHOPRIM [Interacting]
     Active Substance: SULFAMETHOXAZOLE\TRIMETHOPRIM
     Indication: Urinary tract infection
     Dosage: 1 DF, BID (1 DF (400/80 MG), BID, TWO 14-DAY COURSES)
     Route: 048
  14. CALCITRIOL [Suspect]
     Active Substance: CALCITRIOL
     Indication: Hypocalcaemia
     Dosage: 0.25 ?G, QD (0.25 UG EVERY OTHER DAY IN COMBINATION WITH CALCIUM CARBOANATE)
     Route: 048
  15. PREDNISONE [Suspect]
     Active Substance: PREDNISONE
     Indication: Renal tubular injury
     Dosage: 60 MG, QD
     Route: 048
  16. METHYLPREDNISOLONE [Suspect]
     Active Substance: METHYLPREDNISOLONE
     Indication: Acute kidney injury
     Dosage: 250 MG, QD
     Route: 042
  17. METHYLPREDNISOLONE [Suspect]
     Active Substance: METHYLPREDNISOLONE
     Indication: Renal tubular injury
  18. CALCIUM CARBONATE [Concomitant]
     Active Substance: CALCIUM CARBONATE
     Indication: Hypocalcaemia
     Dosage: 1 G, TID (3 X 1G/DAY)
     Route: 065
  19. POTASSIUM BICARBONATE [Concomitant]
     Active Substance: POTASSIUM BICARBONATE
     Indication: Hypokalaemia
     Dosage: 2 G, QD
     Route: 065
  20. POTASSIUM CITRATE [Concomitant]
     Active Substance: POTASSIUM CITRATE
     Indication: Hypokalaemia
     Dosage: 2 G, QD
     Route: 065
  21. POTASSIUM CITRATE [Concomitant]
     Active Substance: POTASSIUM CITRATE
     Indication: Supplementation therapy
  22. CEFUROXIME [Concomitant]
     Active Substance: CEFUROXIME
     Indication: Product used for unknown indication
     Dosage: 1500 MG, QID
     Route: 048
  23. FENOFIBRATE [Concomitant]
     Active Substance: FENOFIBRATE
     Indication: Dyslipidaemia
     Dosage: 1 DF (145/40 MG), UNKNOWN
     Route: 065
  24. FENOFIBRATE [Concomitant]
     Active Substance: FENOFIBRATE
     Dosage: 1 DF (145/20 MG), UNKNOWN
     Route: 065

REACTIONS (25)
  - Drug-induced liver injury [Recovered/Resolved]
  - Asthenia [Recovered/Resolved]
  - Dyspnoea [Recovered/Resolved]
  - Oliguria [Recovered/Resolved]
  - Anuria [Recovered/Resolved]
  - Ascites [Recovered/Resolved]
  - Oedema peripheral [Recovered/Resolved]
  - Renal tubular injury [Recovered/Resolved]
  - Proteinuria [Recovered/Resolved]
  - Pyrexia [Recovered/Resolved]
  - Hyperhidrosis [Recovered/Resolved]
  - Chills [Recovered/Resolved]
  - Cough [Recovered/Resolved]
  - Nephropathy toxic [Recovered/Resolved]
  - Pneumonia [Recovered/Resolved]
  - Enterococcal infection [Recovered/Resolved]
  - Weight increased [Recovered/Resolved]
  - Dyslipidaemia [Unknown]
  - Anaemia [Recovered/Resolved]
  - Hypokalaemia [Recovered/Resolved]
  - Hypocalcaemia [Recovered/Resolved]
  - Urinary tract infection [Recovered/Resolved]
  - Hepatotoxicity [Recovered/Resolved]
  - Drug interaction [Unknown]
  - Acute kidney injury [Recovered/Resolved]
